FAERS Safety Report 6222624-1 (Version None)
Quarter: 2009Q2

REPORT INFORMATION
  Report Type: 
  Country: None (occurrence: None)
  Receive Date: 20090611
  Receipt Date: 20090604
  Transmission Date: 20091009
  Serious: Yes (Death, Hospitalization)
  Sender: FDA-Public Use
  Company Number: FR-NOVOPROD-286762

PATIENT
  Age: 91 Year
  Sex: Male

DRUGS (12)
  1. NOVOMIX 30 FLEXPEN [Suspect]
     Indication: TYPE 2 DIABETES MELLITUS
     Dosage: 46 IU, QD
     Route: 058
     Dates: start: 20090301, end: 20090301
  2. PLAVIX [Concomitant]
     Dosage: 75 MG, UNK
  3. CARDENSIEL [Concomitant]
     Dosage: 1.25 UNK, UNK
  4. VASTAREL [Concomitant]
     Dosage: 35 UNK, UNK
  5. LOVENOX [Concomitant]
     Dosage: 4000 UNK, UNK
  6. AMLOR [Concomitant]
     Dosage: 5 UNK, UNK
  7. INEXIUM                            /01479302/ [Concomitant]
     Dosage: 20 UNK, UNK
  8. TARDYFERON                         /00023503/ [Concomitant]
  9. DAFALGAN                           /00020001/ [Concomitant]
     Dosage: 500 UNK, UNK
  10. AUGMENTIN '125' [Concomitant]
     Dosage: 1 MG, UNK
  11. LASILIX                            /00032601/ [Concomitant]
     Dosage: 40 MG, QD
     Route: 048
  12. TRIATEC                            /00116401/ [Concomitant]
     Dosage: 2.5 MG, UNK
     Route: 048

REACTIONS (4)
  - DEATH [None]
  - DIABETES MELLITUS INADEQUATE CONTROL [None]
  - FALL [None]
  - HYPOGLYCAEMIA [None]
